FAERS Safety Report 9954002 (Version 2)
Quarter: 2014Q1

REPORT INFORMATION
  Report Type: Spontaneous
  Country: US (occurrence: US)
  Receive Date: 20140304
  Receipt Date: 20140304
  Transmission Date: 20141002
  Serious: No
  Sender: FDA-Public Use
  Company Number: US-TARO-2013P1005611

PATIENT
  Age: 34 Year
  Sex: Male
  Weight: 65.77 kg

DRUGS (1)
  1. LAMOTRIGINE TABLETS 150 MG [Suspect]
     Indication: EPILEPSY
     Route: 048
     Dates: start: 2010

REACTIONS (3)
  - Drug effect incomplete [Not Recovered/Not Resolved]
  - Paraesthesia [Not Recovered/Not Resolved]
  - Product quality issue [Not Recovered/Not Resolved]
